FAERS Safety Report 7020271-5 (Version None)
Quarter: 2010Q3

REPORT INFORMATION
  Report Type: 
  Country: None (occurrence: None)
  Receive Date: 20100927
  Receipt Date: 20100921
  Transmission Date: 20110219
  Serious: Yes (Other)
  Sender: FDA-Public Use
  Company Number: A0882250A

PATIENT
  Age: 53 Year
  Sex: Female

DRUGS (1)
  1. SODIUM FLUORIDE + ISOPENTANE + POTASSIUM NITRATE (NAFLUOR+ISOPENT+KNIT [Suspect]
     Indication: DENTAL CLEANING
     Dosage: DENTAL
     Route: 004
     Dates: end: 20100901

REACTIONS (6)
  - APNOEA [None]
  - DYSPNOEA [None]
  - FOAMING AT MOUTH [None]
  - OROPHARYNGEAL PAIN [None]
  - PRODUCT QUALITY ISSUE [None]
  - THROAT IRRITATION [None]
